FAERS Safety Report 6333110-2 (Version None)
Quarter: 2009Q3

REPORT INFORMATION
  Report Type: 
  Country: None (occurrence: None)
  Receive Date: 20090828
  Receipt Date: 20090824
  Transmission Date: 20100115
  Serious: Yes (Other)
  Sender: FDA-Public Use
  Company Number: US-AVENTIS-200917583US

PATIENT
  Sex: Female

DRUGS (4)
  1. LANTUS [Suspect]
     Route: 058
     Dates: start: 20080501
  2. HUMALOG [Concomitant]
     Dosage: DOSE: UNK
  3. ADVAIR HFA [Concomitant]
     Indication: BRONCHITIS
     Dosage: DOSE: UNK
  4. ADVAIR HFA [Concomitant]
     Dosage: DOSE: UNK

REACTIONS (4)
  - CHEST DISCOMFORT [None]
  - FATIGUE [None]
  - GLYCOSYLATED HAEMOGLOBIN INCREASED [None]
  - WEIGHT INCREASED [None]
